FAERS Safety Report 19195300 (Version 3)
Quarter: 2021Q2

REPORT INFORMATION
  Report Type: Report from Study
  Country: CA (occurrence: CA)
  Receive Date: 20210429
  Receipt Date: 20210625
  Transmission Date: 20210717
  Serious: Yes (Hospitalization, Other)
  Sender: FDA-Public Use
  Company Number: CA-MYLANLABS-2021M1025188

PATIENT
  Sex: Female

DRUGS (2)
  1. EPIPEN [Suspect]
     Active Substance: EPINEPHRINE
     Indication: RUBBER SENSITIVITY
     Dosage: 0.3 MILLIGRAM
  2. EPIPEN [Suspect]
     Active Substance: EPINEPHRINE
     Indication: CYANOSIS

REACTIONS (4)
  - Haemorrhage [Unknown]
  - Pain [Unknown]
  - Device malfunction [Recovered/Resolved]
  - Injury associated with device [Unknown]
